FAERS Safety Report 12772370 (Version 2)
Quarter: 2016Q4

REPORT INFORMATION
  Report Type: Spontaneous
  Country: US (occurrence: US)
  Receive Date: 20160922
  Receipt Date: 20161115
  Transmission Date: 20170207
  Serious: Yes (Other)
  Sender: FDA-Public Use
  Company Number: US-ASTELLAS-2016US036245

PATIENT
  Age: 55 Year
  Sex: Female

DRUGS (1)
  1. MYCAMINE [Suspect]
     Active Substance: MICAFUNGIN SODIUM
     Indication: DEVICE RELATED INFECTION
     Dosage: 100 MG, ONCE DAILY (EVERY 24 HOURS)
     Route: 042
     Dates: start: 20160908, end: 20160929

REACTIONS (2)
  - Wrong technique in product usage process [Unknown]
  - Thrombosis [Recovered/Resolved]

NARRATIVE: CASE EVENT DATE: 20160915
